FAERS Safety Report 18487704 (Version 2)
Quarter: 2020Q4

REPORT INFORMATION
  Report Type: Spontaneous
  Country: US (occurrence: US)
  Receive Date: 20201111
  Receipt Date: 20201213
  Transmission Date: 20210114
  Serious: No
  Sender: FDA-Public Use
  Company Number: US-JNJFOC-20201100877

PATIENT
  Age: 55 Year
  Sex: Female

DRUGS (1)
  1. DURAGESIC [Suspect]
     Active Substance: FENTANYL
     Indication: PAIN
     Route: 062

REACTIONS (10)
  - Diarrhoea [Unknown]
  - Pain [Unknown]
  - Abdominal pain upper [Unknown]
  - Product adhesion issue [Unknown]
  - Adverse reaction [Unknown]
  - Headache [Unknown]
  - Hot flush [Unknown]
  - Bedridden [Unknown]
  - Rash [Unknown]
  - Product dose omission issue [Unknown]

NARRATIVE: CASE EVENT DATE: 202010
